FAERS Safety Report 13862612 (Version 3)
Quarter: 2018Q1

REPORT INFORMATION
  Report Type: Spontaneous
  Country: IT (occurrence: IT)
  Receive Date: 20170814
  Receipt Date: 20180305
  Transmission Date: 20180508
  Serious: Yes (Hospitalization)
  Sender: FDA-Public Use
  Company Number: IT-JNJFOC-20170805572

PATIENT
  Age: 51 Year
  Sex: Female

DRUGS (5)
  1. REACTINE [Suspect]
     Active Substance: CETIRIZINE HYDROCHLORIDE
     Route: 048
  2. REACTINE [Suspect]
     Active Substance: CETIRIZINE HYDROCHLORIDE
     Indication: SELF-INJURIOUS IDEATION
     Route: 048
     Dates: start: 20170805, end: 20170805
  3. VENLAFAXINE [Suspect]
     Active Substance: VENLAFAXINE HYDROCHLORIDE
     Indication: SELF-INJURIOUS IDEATION
     Route: 048
     Dates: start: 20170805, end: 20170805
  4. AERIUS [Suspect]
     Active Substance: DESLORATADINE
     Indication: SELF-INJURIOUS IDEATION
     Route: 048
     Dates: start: 20170805, end: 20170805
  5. QUETIAPINA SANDOZ [Suspect]
     Active Substance: QUETIAPINE FUMARATE
     Indication: SELF-INJURIOUS IDEATION
     Route: 048
     Dates: start: 20170805, end: 20170805

REACTIONS (2)
  - Coma [Recovered/Resolved]
  - Drug abuse [Recovered/Resolved]

NARRATIVE: CASE EVENT DATE: 20170805
